FAERS Safety Report 9631681 (Version 4)
Quarter: 2014Q1

REPORT INFORMATION
  Report Type: Report from Study
  Country: CA (occurrence: CA)
  Receive Date: 20131018
  Receipt Date: 20140107
  Transmission Date: 20141002
  Serious: Yes (Hospitalization, Other)
  Sender: FDA-Public Use
  Company Number: CA-BAYER-2013-118162

PATIENT
  Age: 49 Year
  Sex: Female

DRUGS (2)
  1. STIVARGA [Suspect]
     Indication: COLORECTAL CANCER METASTATIC
     Dosage: 120 MG, QD
     Route: 048
     Dates: start: 20130925, end: 2013
  2. STIVARGA [Suspect]
     Indication: COLORECTAL CANCER METASTATIC
     Dosage: 80 MG, QD
     Route: 048
     Dates: start: 2013, end: 20131231

REACTIONS (13)
  - Blood pressure increased [Not Recovered/Not Resolved]
  - Limb injury [None]
  - Upper limb fracture [None]
  - Fall [None]
  - Colorectal cancer metastatic [None]
  - Blood bilirubin increased [None]
  - Blood alkaline phosphatase increased [None]
  - Paraesthesia [Recovered/Resolved]
  - Headache [None]
  - Arthralgia [None]
  - Erythema [Not Recovered/Not Resolved]
  - Pain in extremity [Not Recovered/Not Resolved]
  - Drug ineffective [None]
